FAERS Safety Report 9154818 (Version 1)
Quarter: 2013Q1

REPORT INFORMATION
  Report Type: Spontaneous
  Country: US (occurrence: US)
  Receive Date: 20130311
  Receipt Date: 20130311
  Transmission Date: 20140127
  Serious: Yes (Hospitalization)
  Sender: FDA-Public Use
  Company Number: US-ROCHE-1200225

PATIENT
  Sex: Male

DRUGS (5)
  1. PEGASYS [Suspect]
     Indication: CHRONIC HEPATITIS C
     Route: 058
     Dates: start: 20121026
  2. COPEGUS [Suspect]
     Indication: CHRONIC HEPATITIS C
     Dosage: DIVIDED DOSE
     Route: 048
     Dates: start: 20121026
  3. COPEGUS [Suspect]
     Route: 048
     Dates: start: 201211
  4. COPEGUS [Suspect]
     Route: 048
     Dates: start: 201301
  5. TELAPREVIR [Suspect]
     Indication: CHRONIC HEPATITIS C
     Route: 065
     Dates: start: 20121026, end: 20130119

REACTIONS (5)
  - Anaemia [Unknown]
  - VIIth nerve paralysis [Unknown]
  - Haemoglobin decreased [Unknown]
  - Haematocrit abnormal [Unknown]
  - Weight decreased [Unknown]
